FAERS Safety Report 8220858-8 (Version None)
Quarter: 2012Q1

REPORT INFORMATION
  Report Type: 
  Country: None (occurrence: None)
  Receive Date: 20120320
  Receipt Date: 20120306
  Transmission Date: 20120608
  Serious: Yes (Death)
  Sender: FDA-Public Use
  Company Number: IT-CELGENEUS-083-21880-12030677

PATIENT
  Sex: Female

DRUGS (1)
  1. REVLIMID [Suspect]
     Dosage: 25 MILLIGRAM
     Route: 048

REACTIONS (1)
  - DEATH [None]
